FAERS Safety Report 23391359 (Version 1)
Quarter: 2024Q1

REPORT INFORMATION
  Report Type: Spontaneous
  Country: US (occurrence: US)
  Receive Date: 20240111
  Receipt Date: 20240111
  Transmission Date: 20240410
  Serious: No
  Sender: FDA-Public Use
  Company Number: US-MLMSERVICE-20231130-4699557-1

PATIENT
  Age: 16 Year
  Sex: Female

DRUGS (21)
  1. DOXORUBICIN [Suspect]
     Active Substance: DOXORUBICIN
     Indication: Metastases to pancreas
  2. DOXORUBICIN [Suspect]
     Active Substance: DOXORUBICIN
     Indication: Primary mediastinal large B-cell lymphoma
  3. DOXORUBICIN [Suspect]
     Active Substance: DOXORUBICIN
     Indication: Metastases to spleen
  4. CYCLOPHOSPHAMIDE [Suspect]
     Active Substance: CYCLOPHOSPHAMIDE
     Indication: Primary mediastinal large B-cell lymphoma
  5. CYCLOPHOSPHAMIDE [Suspect]
     Active Substance: CYCLOPHOSPHAMIDE
     Indication: Metastases to pancreas
  6. CYCLOPHOSPHAMIDE [Suspect]
     Active Substance: CYCLOPHOSPHAMIDE
     Indication: Metastases to spleen
  7. RITUXIMAB [Suspect]
     Active Substance: RITUXIMAB
     Indication: Primary mediastinal large B-cell lymphoma
  8. RITUXIMAB [Suspect]
     Active Substance: RITUXIMAB
     Indication: Metastases to pancreas
  9. RITUXIMAB [Suspect]
     Active Substance: RITUXIMAB
     Indication: Metastases to spleen
  10. VINCRISTINE [Suspect]
     Active Substance: VINCRISTINE
     Indication: Primary mediastinal large B-cell lymphoma
  11. VINCRISTINE [Suspect]
     Active Substance: VINCRISTINE
     Indication: Metastases to spleen
  12. VINCRISTINE [Suspect]
     Active Substance: VINCRISTINE
     Indication: Metastases to pancreas
  13. ETOPOSIDE [Suspect]
     Active Substance: ETOPOSIDE
     Indication: Metastases to spleen
  14. ETOPOSIDE [Suspect]
     Active Substance: ETOPOSIDE
     Indication: Metastases to pancreas
  15. ETOPOSIDE [Suspect]
     Active Substance: ETOPOSIDE
     Indication: Primary mediastinal large B-cell lymphoma
  16. PREDNISONE [Suspect]
     Active Substance: PREDNISONE
     Indication: Metastases to pancreas
  17. PREDNISONE [Suspect]
     Active Substance: PREDNISONE
     Indication: Primary mediastinal large B-cell lymphoma
  18. PREDNISONE [Suspect]
     Active Substance: PREDNISONE
     Indication: Metastases to spleen
  19. NIVOLUMAB [Suspect]
     Active Substance: NIVOLUMAB
     Indication: Primary mediastinal large B-cell lymphoma
  20. NIVOLUMAB [Suspect]
     Active Substance: NIVOLUMAB
     Indication: Metastases to pancreas
  21. NIVOLUMAB [Suspect]
     Active Substance: NIVOLUMAB
     Indication: Metastases to spleen

REACTIONS (2)
  - Nausea [Unknown]
  - Product use in unapproved indication [Unknown]
